FAERS Safety Report 6594942-9 (Version None)
Quarter: 2010Q1

REPORT INFORMATION
  Report Type: 
  Country: None (occurrence: None)
  Receive Date: 20100222
  Receipt Date: 20100215
  Transmission Date: 20100710
  Serious: Yes (Disabling, Other)
  Sender: FDA-Public Use
  Company Number: GB-BAUSCH-2010BL000880

PATIENT
  Age: 45 Year
  Sex: Male

DRUGS (2)
  1. PREDNISOLONE [Suspect]
     Indication: PLEURISY
     Dates: start: 20070901
  2. PREDNISOLONE [Suspect]
     Indication: PNEUMONIA
     Dates: start: 20070901

REACTIONS (3)
  - DYSPNOEA [None]
  - OSTEOPOROSIS [None]
  - WEIGHT INCREASED [None]
